FAERS Safety Report 26196183 (Version 2)
Quarter: 2025Q4

REPORT INFORMATION
  Report Type: Spontaneous
  Country: CH (occurrence: EU)
  Receive Date: 20251224
  Receipt Date: 20251227
  Transmission Date: 20260117
  Serious: Yes (Hospitalization)
  Sender: AUROBINDO
  Company Number: EU-SANDOZ-SDZ2025DE092402

PATIENT
  Sex: Female

DRUGS (10)
  1. IBUPROFEN [Suspect]
     Active Substance: IBUPROFEN
     Indication: Product used for unknown indication
     Dosage: 600 MG
     Route: 065
     Dates: start: 20220328, end: 20220705
  2. IBUPROFEN [Suspect]
     Active Substance: IBUPROFEN
     Dosage: 600 MG
     Route: 065
  3. DICLOFENAC [Suspect]
     Active Substance: DICLOFENAC
     Indication: Product used for unknown indication
     Dosage: 150 MG
     Route: 065
     Dates: start: 20231115, end: 20240115
  4. NAPROXEN [Suspect]
     Active Substance: NAPROXEN
     Indication: Product used for unknown indication
     Dosage: 500 MG
     Route: 065
  5. NAPROXEN [Suspect]
     Active Substance: NAPROXEN
     Dosage: 125 MG
     Route: 065
     Dates: start: 20220706, end: 20240101
  6. NAPROXEN [Suspect]
     Active Substance: NAPROXEN
     Dosage: 125 MG
     Route: 065
  7. COSENTYX [Suspect]
     Active Substance: SECUKINUMAB
     Indication: Axial spondyloarthritis
     Dosage: 150 MG
     Route: 065
  8. COSENTYX [Suspect]
     Active Substance: SECUKINUMAB
     Dosage: 150 MG
     Route: 065
     Dates: start: 20211006, end: 20220223
  9. COSENTYX [Suspect]
     Active Substance: SECUKINUMAB
     Dosage: 150 MG
     Route: 065
  10. COSENTYX [Suspect]
     Active Substance: SECUKINUMAB
     Dosage: 150 MG
     Route: 065

REACTIONS (20)
  - Ovarian germ cell teratoma benign [Unknown]
  - Rotator cuff syndrome [Not Recovered/Not Resolved]
  - Chondromalacia [Not Recovered/Not Resolved]
  - Exostosis [Not Recovered/Not Resolved]
  - Synovitis [Not Recovered/Not Resolved]
  - Ankle impingement [Unknown]
  - Teratoma [Recovered/Resolved]
  - Aphthous ulcer [Unknown]
  - Pharyngitis [Unknown]
  - Animal bite [Unknown]
  - Eczema eyelids [Unknown]
  - Pain in extremity [Unknown]
  - Pruritus [Unknown]
  - Eczema [Unknown]
  - Cough [Unknown]
  - Laryngitis [Unknown]
  - Temporomandibular pain and dysfunction syndrome [Unknown]
  - Oral herpes [Unknown]
  - Oropharyngeal pain [Unknown]
  - Influenza like illness [Unknown]

NARRATIVE: CASE EVENT DATE: 20211115
